FAERS Safety Report 23946141 (Version 1)
Quarter: 2024Q2

REPORT INFORMATION
  Report Type: Spontaneous
  Country: US (occurrence: US)
  Receive Date: 20240606
  Receipt Date: 20240606
  Transmission Date: 20240716
  Serious: No
  Sender: FDA-Public Use
  Company Number: US-002147023-NVSC2024US118337

PATIENT
  Sex: Male

DRUGS (1)
  1. MEKINIST [Suspect]
     Active Substance: TRAMETINIB DIMETHYL SULFOXIDE
     Indication: Cardiomyopathy
     Dosage: 3 ML, QD (ORAL SOLUTION)
     Route: 048
     Dates: start: 202404

REACTIONS (2)
  - Constipation [Unknown]
  - Off label use [Unknown]
